FAERS Safety Report 6865177-7 (Version None)
Quarter: 2010Q3

REPORT INFORMATION
  Report Type: 
  Country: None (occurrence: None)
  Receive Date: 20100721
  Receipt Date: 20080422
  Transmission Date: 20110219
  Serious: Yes (Other)
  Sender: FDA-Public Use
  Company Number: US-PFIZER INC-2008032761

PATIENT
  Sex: Female
  Weight: 58.1 kg

DRUGS (1)
  1. CHANTIX [Suspect]
     Indication: SMOKING CESSATION THERAPY
     Dates: start: 20070101

REACTIONS (5)
  - DEPRESSED MOOD [None]
  - DRUG INEFFECTIVE [None]
  - FATIGUE [None]
  - INITIAL INSOMNIA [None]
  - TOBACCO USER [None]
